FAERS Safety Report 14584866 (Version 1)
Quarter: 2018Q1

REPORT INFORMATION
  Report Type: Spontaneous
  Country: IN (occurrence: IN)
  Receive Date: 20180301
  Receipt Date: 20180301
  Transmission Date: 20180509
  Serious: Yes (Hospitalization, Other)
  Sender: FDA-Public Use
  Company Number: IN-ACCORD-063756

PATIENT
  Age: 27 Year
  Sex: Male

DRUGS (4)
  1. ETOPOSIDE. [Suspect]
     Active Substance: ETOPOSIDE
     Indication: ALVEOLAR RHABDOMYOSARCOMA
     Dates: start: 2016
  2. MESNA. [Suspect]
     Active Substance: MESNA
     Indication: ALVEOLAR RHABDOMYOSARCOMA
     Dates: start: 2016
  3. IFOSFAMIDE. [Suspect]
     Active Substance: IFOSFAMIDE
     Indication: ALVEOLAR RHABDOMYOSARCOMA
     Dates: start: 2016
  4. VINCRISTINE [Suspect]
     Active Substance: VINCRISTINE
     Indication: ALVEOLAR RHABDOMYOSARCOMA
     Dates: start: 2016

REACTIONS (2)
  - Transaminases increased [Unknown]
  - Pyomyositis [Unknown]

NARRATIVE: CASE EVENT DATE: 2016
